FAERS Safety Report 10209581 (Version 2)
Quarter: 2014Q2

REPORT INFORMATION
  Report Type: Not Available
  Country: US (occurrence: US)
  Receive Date: 20140602
  Receipt Date: 20140602
  Transmission Date: 20141212
  Serious: Yes (Other)
  Sender: FDA-Public Use
  Company Number: US-BEH-2014042279

PATIENT
  Age: 52 Year
  Sex: Female

DRUGS (13)
  1. HIZENTRA [Suspect]
     Route: 058
  2. SPORANOX [Suspect]
  3. AZITHROMYCIN [Suspect]
  4. ADVAIR [Suspect]
  5. NEBULIZER [Suspect]
  6. FLAXSEED OIL [Suspect]
  7. VITAMIN D [Suspect]
  8. NAPROXEN SODIUM [Suspect]
  9. ZYRTEC [Suspect]
  10. CALCIUM D [Suspect]
  11. MULTIVITAMIN [Suspect]
  12. PLAQUENIL [Concomitant]
  13. SERTRALINE [Concomitant]

REACTIONS (5)
  - Fear [Unknown]
  - Infusion site pain [Unknown]
  - Infusion site swelling [Unknown]
  - Infusion site erythema [Unknown]
  - Infusion site reaction [Unknown]
